FAERS Safety Report 7776287-4 (Version None)
Quarter: 2011Q3

REPORT INFORMATION
  Report Type: 
  Country: None (occurrence: None)
  Receive Date: 20110926
  Receipt Date: 20110914
  Transmission Date: 20111222
  Serious: Yes (Other)
  Sender: FDA-Public Use
  Company Number: US-JNJFOC-20110906464

PATIENT
  Sex: Male
  Weight: 78.47 kg

DRUGS (2)
  1. RISPERDAL CONSTA [Suspect]
     Indication: ABNORMAL BEHAVIOUR
     Route: 030
     Dates: start: 20040101, end: 20110801
  2. RISPERDAL CONSTA [Suspect]
     Route: 030
     Dates: start: 20110801

REACTIONS (12)
  - EXERCISE TOLERANCE DECREASED [None]
  - TARDIVE DYSKINESIA [None]
  - DYSGRAPHIA [None]
  - DIZZINESS [None]
  - DRUG INEFFECTIVE [None]
  - AKATHISIA [None]
  - ABDOMINAL PAIN [None]
  - SPEECH DISORDER [None]
  - READING DISORDER [None]
  - DELUSION [None]
  - MEMORY IMPAIRMENT [None]
  - ACTIVITIES OF DAILY LIVING IMPAIRED [None]
